FAERS Safety Report 4703016-0 (Version None)
Quarter: 2005Q2

REPORT INFORMATION
  Report Type: 
  Country: None (occurrence: None)
  Receive Date: 20050628
  Receipt Date: 20050628
  Transmission Date: 20051028
  Serious: No
  Sender: FDA-Public Use
  Company Number: None

PATIENT
  Sex: Female
  Weight: 58.0604 kg

DRUGS (1)
  1. VERAPAMIL [Suspect]
     Indication: MIGRAINE PROPHYLAXIS
     Dosage: 100 MG ONE PO QD
     Route: 048

REACTIONS (1)
  - HEADACHE [None]
